FAERS Safety Report 6222169 (Version 4)
Quarter: 2012Q4

REPORT INFORMATION
  Report Type: 
  Country: US (occurrence: US)
  Receive Date: 20070124
  Receipt Date: 20120831
  Transmission Date: 20130627
  Serious: Yes (Hospitalization)
  Sender: FDA-Public Use
  Company Number: US-ELI_LILLY_AND_COMPANY-US200701002201

PATIENT
  Age: 83 None
  Sex: Female

DRUGS (9)
  1. CYMBALTA [Suspect]
     Indication: DEPRESSION
     Dosage: 20 mg, daily (1/D)
     Dates: start: 200601, end: 200701
  2. CYMBALTA [Suspect]
     Dosage: 40 mg, daily (1/D)
     Dates: start: 200701
  3. CYMBALTA [Suspect]
     Dosage: 20 mg, 2/D
  4. CYMBALTA [Suspect]
     Dosage: 60 mg, qd
  5. DIOVAN HCT [Concomitant]
     Indication: BLOOD PRESSURE
  6. ACIPHEX [Concomitant]
  7. EZETIMIBE [Concomitant]
     Indication: BLOOD CHOLESTEROL
  8. SIMVASTATIN [Concomitant]
     Indication: BLOOD CHOLESTEROL
  9. ASPIRIN [Concomitant]

REACTIONS (4)
  - Abscess intestinal [Recovered/Resolved]
  - Bradyphrenia [Unknown]
  - Blood pressure increased [Not Recovered/Not Resolved]
  - Urine output increased [Unknown]
